FAERS Safety Report 11528596 (Version 1)
Quarter: 2015Q3

REPORT INFORMATION
  Report Type: Spontaneous
  Country: GB (occurrence: GB)
  Receive Date: 20150921
  Receipt Date: 20150921
  Transmission Date: 20151125
  Serious: Yes (Life-Threatening, Hospitalization)
  Sender: FDA-Public Use
  Company Number: GB-AUROBINDO-AUR-APL-2015-08387

PATIENT
  Age: 60 Year
  Sex: Female

DRUGS (5)
  1. OMEPRAZOLE 40MG [Suspect]
     Active Substance: OMEPRAZOLE
     Indication: GASTROINTESTINAL DISORDER
     Dosage: 40 MG, UNK
     Route: 048
     Dates: start: 20150511
  2. LEVETIRACETAM 250MG [Suspect]
     Active Substance: LEVETIRACETAM
     Indication: SEIZURE
     Dosage: 250 MG, DAILY
     Route: 048
     Dates: start: 20150821
  3. LEVETIRACETAM 250MG [Suspect]
     Active Substance: LEVETIRACETAM
     Dosage: 250 MG, TWO TIMES A DAY
     Route: 048
     Dates: end: 20150829
  4. CLEXANE [Suspect]
     Active Substance: ENOXAPARIN SODIUM
     Indication: THROMBOSIS PROPHYLAXIS
     Dosage: 40 MG, ONCE A DAY
     Route: 058
     Dates: start: 20150810, end: 20150826
  5. DEXAMETHASONE. [Suspect]
     Active Substance: DEXAMETHASONE
     Indication: MENINGIOMA
     Dosage: VARYING BETWEEN 4MG FOUR TIMES A DAY AND 2MG TWICE DAILY.
     Route: 048
     Dates: start: 20150819

REACTIONS (2)
  - Platelet count decreased [Not Recovered/Not Resolved]
  - Thrombocytopenia [Not Recovered/Not Resolved]

NARRATIVE: CASE EVENT DATE: 20150827
